FAERS Safety Report 22233957 (Version 3)
Quarter: 2023Q2

REPORT INFORMATION
  Report Type: Spontaneous
  Country: JP (occurrence: JP)
  Receive Date: 20230420
  Receipt Date: 20230518
  Transmission Date: 20230721
  Serious: Yes (Death, Life-Threatening)
  Sender: FDA-Public Use
  Company Number: JP-GSKJP-JP2023JPN050334AA

PATIENT

DRUGS (4)
  1. DAPRODUSTAT [Suspect]
     Active Substance: DAPRODUSTAT
     Indication: Nephrogenic anaemia
     Dosage: 2 MG
     Route: 048
     Dates: start: 20230403, end: 20230406
  2. CEFTRIAXONE SODIUM [Concomitant]
     Active Substance: CEFTRIAXONE SODIUM
     Indication: Urinary tract infection
     Dosage: UNK
     Dates: start: 2022
  3. CEFTRIAXONE SODIUM [Concomitant]
     Active Substance: CEFTRIAXONE SODIUM
     Dosage: 1 G, 1D
     Dates: start: 20230326, end: 20230402
  4. PIPERACILLIN AND TAZOBACTAM [Concomitant]
     Active Substance: PIPERACILLIN SODIUM\TAZOBACTAM SODIUM
     Indication: Urinary tract infection
     Dosage: 4.5 G, BID
     Dates: start: 20230403, end: 20230407

REACTIONS (3)
  - Platelet count decreased [Fatal]
  - Prescribed underdose [Unknown]
  - Off label use [Unknown]

NARRATIVE: CASE EVENT DATE: 20230403
